FAERS Safety Report 20718277 (Version 1)
Quarter: 2022Q2

REPORT INFORMATION
  Report Type: Spontaneous
  Country: None (occurrence: US)
  Receive Date: 20220418
  Receipt Date: 20220418
  Transmission Date: 20220720
  Serious: No
  Sender: FDA-Public Use
  Company Number: US-UROGEN PHARMA LTD.-2021-UGN-000015

PATIENT
  Age: 68 Year
  Sex: Male

DRUGS (5)
  1. JELMYTO [Suspect]
     Active Substance: MITOMYCIN
     Indication: Transitional cell carcinoma
     Dosage: UNK, (1 TIMES PER WEEK INSTILLATON)
     Dates: start: 20210305, end: 20210305
  2. JELMYTO [Suspect]
     Active Substance: MITOMYCIN
     Dosage: UNK
     Dates: start: 202103, end: 202103
  3. JELMYTO [Suspect]
     Active Substance: MITOMYCIN
     Dosage: UNK
     Dates: start: 20210319, end: 20210319
  4. JELMYTO [Suspect]
     Active Substance: MITOMYCIN
     Dosage: 5 MILLILITER
     Dates: start: 20210404, end: 20210404
  5. SODIUM CHLORIDE [Concomitant]
     Active Substance: SODIUM CHLORIDE
     Indication: Product used for unknown indication
     Dosage: UNK

REACTIONS (2)
  - Rash [Recovered/Resolved]
  - Flank pain [Recovered/Resolved]

NARRATIVE: CASE EVENT DATE: 20210320
